FAERS Safety Report 7820266-5 (Version None)
Quarter: 2011Q4

REPORT INFORMATION
  Report Type: 
  Country: None (occurrence: None)
  Receive Date: 20111012
  Receipt Date: 20111004
  Transmission Date: 20120403
  Serious: Yes (Hospitalization)
  Sender: FDA-Public Use
  Company Number: DSA_47787_2011

PATIENT
  Age: 71 Year
  Sex: Female

DRUGS (3)
  1. ENALAPRIL MALEATE [Suspect]
     Indication: HYPERLIPIDAEMIA
     Dosage: (DF ORAL), (DF ORAL)
     Route: 048
  2. ENALAPRIL MALEATE [Suspect]
     Indication: HYPERTENSION
     Dosage: (DF ORAL), (DF ORAL)
     Route: 048
  3. AMLODIPINE [Suspect]
     Indication: PRODUCT USED FOR UNKNOWN INDICATION
     Dosage: 5 MG FREQUENCY UNSPECIFIED

REACTIONS (7)
  - STEVENS-JOHNSON SYNDROME [None]
  - CONDITION AGGRAVATED [None]
  - TOXIC EPIDERMAL NECROLYSIS [None]
  - HYPERKALAEMIA [None]
  - SKIN TOXICITY [None]
  - PROTEINURIA [None]
  - RENAL IMPAIRMENT [None]
